FAERS Safety Report 4274791-7 (Version None)
Quarter: 2004Q1

REPORT INFORMATION
  Report Type: 
  Country: None (occurrence: None)
  Receive Date: 20040116
  Receipt Date: 20040105
  Transmission Date: 20041129
  Serious: Yes (Other)
  Sender: FDA-Public Use
  Company Number: HQWYE033505JAN04

PATIENT
  Age: 78 Year
  Sex: Female

DRUGS (4)
  1. CORDARONE [Suspect]
     Indication: ARRHYTHMIA
     Dosage: FEW YEARS
     Route: 048
     Dates: end: 20031103
  2. MYSOLINE [Suspect]
     Indication: ESSENTIAL TREMOR
     Dosage: 312.5 MG 1X PER 1 DAY
     Route: 048
     Dates: start: 20020601, end: 20031103
  3. BOTOX [Concomitant]
  4. LESCOL [Concomitant]

REACTIONS (2)
  - BLOOD ALKALINE PHOSPHATASE INCREASED [None]
  - GAMMA-GLUTAMYLTRANSFERASE INCREASED [None]
